FAERS Safety Report 6313451-5 (Version None)
Quarter: 2009Q3

REPORT INFORMATION
  Report Type: 
  Country: None (occurrence: None)
  Receive Date: 20090814
  Receipt Date: 20090814
  Transmission Date: 20100115
  Serious: Yes (Life-Threatening)
  Sender: FDA-Public Use
  Company Number: None

PATIENT
  Sex: Female
  Weight: 99.7913 kg

DRUGS (2)
  1. NEURONTIN [Suspect]
     Dosage: 2 CAPSULES TWICE DAILY PO
     Route: 048
     Dates: start: 20081201, end: 20081201
  2. GABAPENTIN [Suspect]
     Dates: start: 20090607, end: 20090610

REACTIONS (1)
  - SUICIDAL IDEATION [None]
